FAERS Safety Report 8218134-2 (Version None)
Quarter: 2012Q1

REPORT INFORMATION
  Report Type: 
  Country: None (occurrence: None)
  Receive Date: 20120319
  Receipt Date: 20120306
  Transmission Date: 20120608
  Serious: Yes (Other)
  Sender: FDA-Public Use
  Company Number: US-ROCHE-1048974

PATIENT
  Sex: Female
  Weight: 56.75 kg

DRUGS (7)
  1. ASPIRIN [Concomitant]
  2. SYNTHROID [Concomitant]
     Indication: HYPOTHYROIDISM
  3. LEXAPRO [Concomitant]
     Indication: DEPRESSION
  4. TOPRAL (RUSSIA) [Concomitant]
  5. AVASTIN [Suspect]
     Indication: BILE DUCT CANCER
     Route: 042
     Dates: start: 20110628, end: 20111001
  6. SORAFENIB [Suspect]
     Indication: PRODUCT USED FOR UNKNOWN INDICATION
     Dates: start: 20111201
  7. HYDROCODONE [Concomitant]
     Indication: PAIN

REACTIONS (3)
  - BLISTER [None]
  - CHEMICAL INJURY [None]
  - OROPHARYNGEAL BLISTERING [None]
